FAERS Safety Report 25497399 (Version 2)
Quarter: 2025Q3

REPORT INFORMATION
  Report Type: Spontaneous
  Country: EU (occurrence: EU)
  Receive Date: 20250701
  Receipt Date: 20250924
  Transmission Date: 20251020
  Serious: Yes (Other)
  Sender: TAKEDA
  Company Number: EU-TAKEDA-2025TUS046578

PATIENT
  Age: 60 Year
  Sex: Male

DRUGS (5)
  1. MARIBAVIR [Suspect]
     Active Substance: MARIBAVIR
     Indication: Cytomegalovirus infection
  2. VALGANCICLOVIR [Suspect]
     Active Substance: VALGANCICLOVIR
     Indication: Cytomegalovirus infection
     Dosage: 900 MILLIGRAM, BID
  3. VALGANCICLOVIR [Suspect]
     Active Substance: VALGANCICLOVIR
  4. LETERMOVIR [Concomitant]
     Active Substance: LETERMOVIR
  5. FOSCARNET [Concomitant]
     Active Substance: FOSCARNET
     Indication: Cytomegalovirus infection

REACTIONS (3)
  - Drug resistance [Recovered/Resolved]
  - Off label use [Unknown]
  - Drug resistance mutation [Recovered/Resolved]
